FAERS Safety Report 4600080-4 (Version None)
Quarter: 2005Q1

REPORT INFORMATION
  Report Type: 
  Country: None (occurrence: None)
  Receive Date: 20050303
  Receipt Date: 20050224
  Transmission Date: 20050727
  Serious: Yes (Life-Threatening, Hospitalization)
  Sender: FDA-Public Use
  Company Number: TCI2005A00138

PATIENT
  Age: 35 Year
  Sex: Female

DRUGS (13)
  1. LEUPROLIDE ACETATE [Suspect]
     Indication: BREAST CANCER
     Dosage: 3.75 MG (3.75 MG, 1 IN 28 D) SUBCUTANEOUS
     Route: 058
     Dates: start: 20041207
  2. LEUPROLIDE ACETATE [Suspect]
     Indication: POSTOPERATIVE CARE
     Dosage: 3.75 MG (3.75 MG, 1 IN 28 D) SUBCUTANEOUS
     Route: 058
     Dates: start: 20041207
  3. LASIX [Concomitant]
  4. ALDACTONE-A (SPIRONOLACTONE) (TABLETS) [Concomitant]
  5. FLUITRAN (TRICHLORMETHIZAIDE) (TABLETS) [Concomitant]
  6. NU-LOTAN (LOSARTAN POTASSIUM) (TABLETS) [Concomitant]
  7. ARTIST (CARVEDILOL) (TABLETS) [Concomitant]
  8. BAYASPIRIN (ACETYLSALICYLIC ACID) (TABLETS) [Concomitant]
  9. WARFARIN (WARFARIN) (TABLETS) [Concomitant]
  10. ASPARA K (ASPARTATE POTASSIUM) (TABLETS) [Concomitant]
  11. MUCOSTA (REBAMIPIDE) (TABLETS) [Concomitant]
  12. MAGNESIUM OXIDE (PREPARATION FOR ORAL USE (NOS)) [Concomitant]
  13. NOLVADEX (TAMOXIFEN CITRATE) (TABLETS) [Concomitant]

REACTIONS (3)
  - FATIGUE [None]
  - HYPERTHERMIA [None]
  - PANCYTOPENIA [None]
